FAERS Safety Report 10040120 (Version 1)
Quarter: 2014Q1

REPORT INFORMATION
  Report Type: Report from Study
  Country: DE (occurrence: DE)
  Receive Date: 20140326
  Receipt Date: 20140326
  Transmission Date: 20141002
  Serious: Yes (Other)
  Sender: FDA-Public Use
  Company Number: DE-CELGENEUS-062-20785-14032299

PATIENT
  Age: 72 Year
  Sex: 0

DRUGS (1)
  1. THALIDOMIDE [Suspect]
     Indication: MYELODYSPLASTIC SYNDROME
     Route: 048

REACTIONS (4)
  - Cardiovascular disorder [Unknown]
  - Renal failure [Unknown]
  - Diabetes mellitus [Unknown]
  - Respiratory disorder [Unknown]
